FAERS Safety Report 7048010-2 (Version None)
Quarter: 2010Q4

REPORT INFORMATION
  Report Type: 
  Country: None (occurrence: None)
  Receive Date: 20101015
  Receipt Date: 20101011
  Transmission Date: 20110411
  Serious: Yes (Hospitalization)
  Sender: FDA-Public Use
  Company Number: A0885899A

PATIENT
  Sex: Female

DRUGS (5)
  1. ADVAIR DISKUS 100/50 [Suspect]
     Indication: ASTHMA
     Dosage: 1PUFF TWICE PER DAY
     Route: 055
  2. CRESTOR [Concomitant]
  3. LISINOPRIL [Concomitant]
  4. TENEX [Concomitant]
  5. OMEPRAZOLE [Concomitant]

REACTIONS (13)
  - CATHETER PLACEMENT [None]
  - DRUG ADMINISTRATION ERROR [None]
  - DRUG DOSE OMISSION [None]
  - FEELING ABNORMAL [None]
  - HEART RATE INCREASED [None]
  - LUNG INFECTION [None]
  - MEDICAL DEVICE COMPLICATION [None]
  - PHARYNGITIS [None]
  - PNEUMONIA FUNGAL [None]
  - POST PROCEDURAL COMPLICATION [None]
  - RESPIRATORY TRACT INFECTION [None]
  - RESPIRATORY TRACT INFECTION VIRAL [None]
  - STENT PLACEMENT [None]
